FAERS Safety Report 6174596-6 (Version None)
Quarter: 2009Q2

REPORT INFORMATION
  Report Type: 
  Country: None (occurrence: None)
  Receive Date: 20090430
  Receipt Date: 20080812
  Transmission Date: 20091009
  Serious: No
  Sender: FDA-Public Use
  Company Number: US-ASTRAZENECA-2008UW16430

PATIENT
  Age: 26 Year
  Sex: Female
  Weight: 66.7 kg

DRUGS (7)
  1. NEXIUM [Suspect]
     Indication: IMPAIRED GASTRIC EMPTYING
     Route: 048
     Dates: start: 20060101, end: 20070101
  2. NEXIUM [Suspect]
     Indication: NAUSEA
     Route: 048
     Dates: start: 20060101, end: 20070101
  3. NEXIUM [Suspect]
     Route: 048
     Dates: start: 20070101
  4. NEXIUM [Suspect]
     Route: 048
     Dates: start: 20070101
  5. AMOXICILLIN [Concomitant]
     Indication: TOOTH INFECTION
  6. PRILOSEC OTC [Concomitant]
     Route: 048
  7. VITAMINS NOS [Concomitant]

REACTIONS (1)
  - HEART RATE DECREASED [None]
